FAERS Safety Report 4461962-X (Version None)
Quarter: 2004Q3

REPORT INFORMATION
  Report Type: 
  Country: None (occurrence: None)
  Receive Date: 20040927
  Receipt Date: 20040927
  Transmission Date: 20050211
  Serious: Yes (Hospitalization)
  Sender: FDA-Public Use
  Company Number: None

PATIENT
  Age: 77 Year
  Sex: Male
  Weight: 91 kg

DRUGS (15)
  1. METFORMIN HCL [Suspect]
     Indication: DIABETES MELLITUS
     Dosage: 850 MG TID ORAL
     Route: 048
     Dates: start: 20031203, end: 20040123
  2. ROSIGLITAZONE 4 MG TAB [Suspect]
     Indication: DIABETES MELLITUS
     Dosage: 4 MG QD ORAL
     Route: 048
     Dates: start: 20031202, end: 20040123
  3. AMITRIPTYLINE HCL [Concomitant]
  4. PROPOXYPHENE [Concomitant]
  5. TYLENNOL [Concomitant]
  6. ASCORBIC ACID [Concomitant]
  7. FELODIPINE [Concomitant]
  8. FOSINOPRIL [Concomitant]
  9. GLIPIZIDE [Concomitant]
  10. HYDROCHLOROTHIAZIDE [Concomitant]
  11. METOPROLOL [Concomitant]
  12. SIMVASTATIN [Concomitant]
  13. PSYLILIUM [Concomitant]
  14. WARFARIN SODIUM [Concomitant]
  15. LOPERAMIDE HCL [Concomitant]

REACTIONS (8)
  - ACIDOSIS [None]
  - APHASIA [None]
  - COMA [None]
  - DEHYDRATION [None]
  - HYPOGLYCAEMIA [None]
  - PARALYSIS FLACCID [None]
  - RENAL FAILURE ACUTE [None]
  - SOMNOLENCE [None]
